FAERS Safety Report 7911961-8 (Version None)
Quarter: 2011Q4

REPORT INFORMATION
  Report Type: 
  Country: None (occurrence: None)
  Receive Date: 20111114
  Receipt Date: 20111110
  Transmission Date: 20120403
  Serious: Yes (Disabling)
  Sender: FDA-Public Use
  Company Number: GB-ROCHE-1003679

PATIENT

DRUGS (2)
  1. DIFFLAM [Concomitant]
     Indication: STOMATITIS
     Dates: start: 20110620
  2. AVASTIN [Suspect]
     Indication: MALIGNANT MELANOMA
     Dates: start: 20110420

REACTIONS (1)
  - ERECTILE DYSFUNCTION [None]
